FAERS Safety Report 4636553-8 (Version None)
Quarter: 2005Q2

REPORT INFORMATION
  Report Type: 
  Country: None (occurrence: None)
  Receive Date: 20050414
  Receipt Date: 20050414
  Transmission Date: 20051028
  Serious: Yes (Hospitalization, Disabling)
  Sender: FDA-Public Use
  Company Number: None

PATIENT
  Age: 75 Year
  Sex: Male
  Weight: 68 kg

DRUGS (1)
  1. ALTEPLASE 1MG/ML GENENTECH [Suspect]
     Indication: CEREBROVASCULAR ACCIDENT
     Dosage: 61.2MG  ONE HOUR  INTRAVENOU
     Route: 042
     Dates: start: 20050224, end: 20050224

REACTIONS (9)
  - ACUTE RESPIRATORY DISTRESS SYNDROME [None]
  - COMA [None]
  - HYPOXIA [None]
  - INJURY [None]
  - INTERSTITIAL LUNG DISEASE [None]
  - ISCHAEMIA [None]
  - LUNG DISORDER [None]
  - MOVEMENT DISORDER [None]
  - RESPIRATORY FAILURE [None]
